FAERS Safety Report 9321549 (Version 4)
Quarter: 2014Q1

REPORT INFORMATION
  Report Type: Report from Study
  Country: US (occurrence: US)
  Receive Date: 20130531
  Receipt Date: 20140213
  Transmission Date: 20141002
  Serious: Yes (Life-Threatening, Hospitalization, Other)
  Sender: FDA-Public Use
  Company Number: US-ROCHE-1069568

PATIENT
  Age: 0 Day
  Sex: Female

DRUGS (10)
  1. OMALIZUMAB [Suspect]
     Indication: PRODUCT USED FOR UNKNOWN INDICATION
     Dosage: MOST RECENT DOSE:03/MAR/2012
     Route: 064
  2. OMALIZUMAB [Suspect]
     Dosage: 8 WEEKS PRIOR TO CONCEPTION
     Route: 058
     Dates: start: 20110813
  3. OMALIZUMAB [Suspect]
     Dosage: FIRST TRIMESTER
     Route: 058
     Dates: start: 20110910
  4. OMALIZUMAB [Suspect]
     Dosage: FIRST TRIMESTER
     Route: 058
     Dates: start: 20111117
  5. OMALIZUMAB [Suspect]
     Dosage: SECOND TRIMESTER
     Route: 058
     Dates: start: 20111222
  6. OMALIZUMAB [Suspect]
     Dosage: SECOND TRIMESTER
     Route: 058
     Dates: start: 20120130
  7. OMALIZUMAB [Suspect]
     Dosage: SECOND TRIMESTER
     Route: 058
     Dates: start: 20120303
  8. OMALIZUMAB [Suspect]
     Dosage: DATE OF LAST DOSE PRIOR TO VIRAL INFECTION: 03/MAY/2012
     Route: 058
     Dates: start: 2008
  9. ANCEF (UNITED STATES) [Concomitant]
     Indication: PROPHYLAXIS
     Route: 030
     Dates: start: 20120428
  10. TOTAL PARENTERAL NUTRITION [Concomitant]
     Route: 042
     Dates: start: 20120428, end: 20120430

REACTIONS (9)
  - Viral upper respiratory tract infection [Recovered/Resolved]
  - Premature baby [Recovered/Resolved]
  - Gastrooesophageal reflux disease [Unknown]
  - Eczema [Unknown]
  - Sinusitis [Unknown]
  - Maternal exposure timing unspecified [Unknown]
  - Dermatitis diaper [Unknown]
  - Upper respiratory tract infection [Unknown]
  - Dry skin [Recovered/Resolved]
